FAERS Safety Report 8812104 (Version 1)
Quarter: 2012Q4

REPORT INFORMATION
  Report Type: 
  Country: US (occurrence: US)
  Receive Date: 20120927
  Receipt Date: 20120927
  Transmission Date: 20130627
  Serious: Yes (Other)
  Sender: FDA-Public Use
  Company Number: PHHY2012US082521

PATIENT
  Age: 88 Year
  Sex: Female

DRUGS (3)
  1. ASCRIPTIN BUFFERED REG STRENGTH TABLETS [Suspect]
     Indication: PAIN
     Dosage: 325 mg, BID
     Route: 048
  2. VITAMINS [Concomitant]
  3. ADVAIR [Concomitant]
     Indication: ASTHMA

REACTIONS (2)
  - Deafness transitory [Not Recovered/Not Resolved]
  - Incorrect drug administration duration [Unknown]
